FAERS Safety Report 4889771-8 (Version None)
Quarter: 2006Q1

REPORT INFORMATION
  Report Type: 
  Country: None (occurrence: None)
  Receive Date: 20060123
  Receipt Date: 20060123
  Transmission Date: 20060701
  Serious: Yes (Disabling)
  Sender: FDA-Public Use
  Company Number: None

PATIENT
  Sex: Male
  Weight: 104.3273 kg

DRUGS (1)
  1. ZICAM MATRIXX INITIATIVES/ZICAM LLC [Suspect]
     Indication: NASOPHARYNGITIS
     Dosage: 2 SQUIRTS PER NOSTRL ONCE NASAL
     Route: 045
     Dates: start: 20060115, end: 20060115

REACTIONS (3)
  - AGEUSIA [None]
  - ANOSMIA [None]
  - BURNING SENSATION [None]
